FAERS Safety Report 5664873-7 (Version None)
Quarter: 2008Q1

REPORT INFORMATION
  Report Type: 
  Country: None (occurrence: None)
  Receive Date: 20080314
  Receipt Date: 20080304
  Transmission Date: 20080703
  Serious: Yes (Other)
  Sender: FDA-Public Use
  Company Number: US-PFIZER INC-2008009619

PATIENT
  Sex: Male

DRUGS (1)
  1. CHANTIX [Suspect]

REACTIONS (5)
  - ABDOMINAL DISTENSION [None]
  - DISCOMFORT [None]
  - ILL-DEFINED DISORDER [None]
  - MALAISE [None]
  - WAIST CIRCUMFERENCE INCREASED [None]
